FAERS Safety Report 11558626 (Version 1)
Quarter: 2015Q3

REPORT INFORMATION
  Report Type: Spontaneous
  Country: US (occurrence: US)
  Receive Date: 20150928
  Receipt Date: 20150928
  Transmission Date: 20151125
  Serious: Yes (Hospitalization)
  Sender: FDA-Public Use
  Company Number: US-US WORLDMEDS, LLC-USW201509-000253

PATIENT
  Age: 56 Year
  Sex: Male

DRUGS (19)
  1. SINEMET CR [Concomitant]
     Active Substance: CARBIDOPA\LEVODOPA
  2. VALIUM [Concomitant]
     Active Substance: DIAZEPAM
     Indication: ANXIETY
  3. PROZAC [Concomitant]
     Active Substance: FLUOXETINE HYDROCHLORIDE
  4. ZESTRIL [Concomitant]
     Active Substance: LISINOPRIL
  5. PRAVACHOL [Concomitant]
     Active Substance: PRAVASTATIN SODIUM
  6. LIDODERM [Concomitant]
     Active Substance: LIDOCAINE
  7. COUMADIN [Concomitant]
     Active Substance: WARFARIN SODIUM
  8. NEURONTIN [Concomitant]
     Active Substance: GABAPENTIN
  9. PRINIVIL [Concomitant]
     Active Substance: LISINOPRIL
  10. ZYLOPRIM [Concomitant]
     Active Substance: ALLOPURINOL
  11. CALCIUM-VITAMIN D [Concomitant]
  12. SINGULAIR [Concomitant]
     Active Substance: MONTELUKAST SODIUM
  13. TIGAN [Concomitant]
     Active Substance: TRIMETHOBENZAMIDE HYDROCHLORIDE
  14. SINEMET [Concomitant]
     Active Substance: CARBIDOPA\LEVODOPA
  15. COLCHICINE. [Concomitant]
     Active Substance: COLCHICINE
  16. MIRAPEX [Concomitant]
     Active Substance: PRAMIPEXOLE DIHYDROCHLORIDE
  17. PRILOSEC [Concomitant]
     Active Substance: OMEPRAZOLE MAGNESIUM
  18. BETAPACE [Concomitant]
     Active Substance: SOTALOL HYDROCHLORIDE
  19. APOKYN [Suspect]
     Active Substance: APOMORPHINE HYDROCHLORIDE
     Indication: PARKINSON^S DISEASE
     Route: 058
     Dates: start: 20150908

REACTIONS (3)
  - Atrial fibrillation [Recovered/Resolved]
  - Condition aggravated [Recovered/Resolved]
  - Cardiac failure congestive [Recovered/Resolved]

NARRATIVE: CASE EVENT DATE: 20150911
